FAERS Safety Report 9403745 (Version 1)
Quarter: 2013Q3

REPORT INFORMATION
  Report Type: Spontaneous
  Country: US (occurrence: None)
  Receive Date: 20130715
  Receipt Date: 20130715
  Transmission Date: 20140515
  Serious: Yes (Hospitalization)
  Sender: FDA-Public Use
  Company Number: None

PATIENT
  Age: 75 Year
  Sex: Male
  Weight: 93 kg

DRUGS (1)
  1. ASPIRIN [Suspect]
     Indication: CARDIAC IMAGING PROCEDURE
     Route: 048
     Dates: start: 20120613, end: 20130623

REACTIONS (1)
  - Haemorrhage intracranial [None]
